FAERS Safety Report 12193602 (Version 2)
Quarter: 2016Q1

REPORT INFORMATION
  Report Type: Report from Study
  Country: US (occurrence: US)
  Receive Date: 20160320
  Receipt Date: 20160331
  Transmission Date: 20160526
  Serious: No
  Sender: FDA-Public Use
  Company Number: US-AMGEN-USASL2016032007

PATIENT
  Age: 71 Year
  Sex: Female

DRUGS (1)
  1. ENBREL [Suspect]
     Active Substance: ETANERCEPT
     Indication: PSORIATIC ARTHROPATHY
     Dosage: 50 MG, QWK
     Route: 065
     Dates: start: 201304

REACTIONS (7)
  - Adverse drug reaction [Unknown]
  - Muscle spasms [Recovered/Resolved]
  - Muscle contracture [Recovered/Resolved]
  - Injection site rash [Unknown]
  - Rash erythematous [Unknown]
  - Fatigue [Not Recovered/Not Resolved]
  - Injection site erythema [Unknown]
